FAERS Safety Report 19051884 (Version 1)
Quarter: 2021Q1

REPORT INFORMATION
  Report Type: Report from Study
  Country: None (occurrence: BR)
  Receive Date: 20210324
  Receipt Date: 20210324
  Transmission Date: 20210420
  Serious: Yes (Other)
  Sender: FDA-Public Use
  Company Number: BR-ABBVIE-21K-020-3822644-00

PATIENT
  Age: 36 Year
  Sex: Female
  Weight: 41 kg

DRUGS (5)
  1. MESIGYNA [Concomitant]
     Indication: INFERTILITY FEMALE
     Dosage: EVERY 18TH DAY OF EVERY MONTH
     Route: 030
     Dates: end: 2019
  2. HUMIRA [Suspect]
     Active Substance: ADALIMUMAB
     Route: 058
     Dates: end: 2019
  3. HUMIRA [Suspect]
     Active Substance: ADALIMUMAB
     Indication: CROHN^S DISEASE
     Dosage: ( LOADING DOSE ? WEEK 00)
     Route: 058
     Dates: start: 2015
  4. HUMIRA [Suspect]
     Active Substance: ADALIMUMAB
     Dosage: LOADING DOSE WEEK 2
     Route: 058
  5. AZATHIOPRINE. [Concomitant]
     Active Substance: AZATHIOPRINE
     Indication: CROHN^S DISEASE
     Dosage: 2 TABLETS IN THE MORNING
     Route: 048
     Dates: start: 2015, end: 2019

REACTIONS (11)
  - Gait disturbance [Not Recovered/Not Resolved]
  - Discouragement [Not Recovered/Not Resolved]
  - Fluid retention [Not Recovered/Not Resolved]
  - Mental disorder [Not Recovered/Not Resolved]
  - Impaired quality of life [Not Recovered/Not Resolved]
  - Weight decreased [Not Recovered/Not Resolved]
  - General physical health deterioration [Not Recovered/Not Resolved]
  - Renal disorder [Recovered/Resolved]
  - Crohn^s disease [Not Recovered/Not Resolved]
  - Pain in extremity [Unknown]
  - Muscle atrophy [Not Recovered/Not Resolved]

NARRATIVE: CASE EVENT DATE: 2015
